FAERS Safety Report 23414513 (Version 3)
Quarter: 2024Q4

REPORT INFORMATION
  Report Type: Report from Study
  Country: DE (occurrence: DE)
  Receive Date: 20240118
  Receipt Date: 20241011
  Transmission Date: 20250115
  Serious: Yes (Hospitalization)
  Sender: ABBVIE
  Company Number: DE-ABBVIE-5590660

PATIENT
  Age: 58 Year
  Sex: Female

DRUGS (2)
  1. RINVOQ [Suspect]
     Active Substance: UPADACITINIB
     Indication: Rheumatoid arthritis
     Route: 048
     Dates: start: 202101
  2. MTX PATCH [Concomitant]
     Indication: Product used for unknown indication
     Route: 065

REACTIONS (1)
  - Tenosynovitis [Recovered/Resolved]

NARRATIVE: CASE EVENT DATE: 20230829
